FAERS Safety Report 8631154 (Version 6)
Quarter: 2013Q3

REPORT INFORMATION
  Report Type: Spontaneous
  Country: US (occurrence: US)
  Receive Date: 20120622
  Receipt Date: 20130726
  Transmission Date: 20140515
  Serious: Yes (Hospitalization)
  Sender: FDA-Public Use
  Company Number: US-ASTRAZENECA-2012SE40942

PATIENT
  Age: 68 Year
  Sex: Female
  Weight: 81.6 kg

DRUGS (6)
  1. NEXIUM [Suspect]
     Indication: HIATUS HERNIA
     Route: 048
  2. NEXIUM [Suspect]
     Indication: GASTROOESOPHAGEAL REFLUX DISEASE
     Route: 048
  3. NEXIUM [Suspect]
     Indication: HIATUS HERNIA
     Route: 048
  4. NEXIUM [Suspect]
     Indication: GASTROOESOPHAGEAL REFLUX DISEASE
     Route: 048
  5. LISINOPRIL [Suspect]
     Route: 048
  6. PROTONIX [Concomitant]

REACTIONS (12)
  - Haemoptysis [Unknown]
  - Pneumonia [Unknown]
  - Dyspnoea [Unknown]
  - Myocardial infarction [Unknown]
  - Mental impairment [Unknown]
  - Hiatus hernia [Unknown]
  - Memory impairment [Unknown]
  - Neuralgia [Unknown]
  - Gastrointestinal disorder [Unknown]
  - Adverse event [Unknown]
  - Weight increased [Unknown]
  - Intentional drug misuse [Unknown]
